FAERS Safety Report 5031538-4 (Version None)
Quarter: 2006Q2

REPORT INFORMATION
  Report Type: 
  Country: None (occurrence: None)
  Receive Date: 20060616
  Receipt Date: 20060607
  Transmission Date: 20061013
  Serious: Yes (Hospitalization)
  Sender: FDA-Public Use
  Company Number: L06-TUN-02353-01

PATIENT
  Age: 71 Year
  Sex: Female

DRUGS (2)
  1. INDOMETHACIN [Suspect]
     Indication: RHEUMATOID ARTHRITIS
  2. CAPTOPRIL [Concomitant]

REACTIONS (1)
  - PANCREATITIS NECROTISING [None]
